FAERS Safety Report 4874143-2 (Version None)
Quarter: 2006Q1

REPORT INFORMATION
  Report Type: 
  Country: None (occurrence: None)
  Receive Date: 20060106
  Receipt Date: 20060103
  Transmission Date: 20060701
  Serious: Yes (Death)
  Sender: FDA-Public Use
  Company Number: US-GLAXOSMITHKLINE-A0587729A

PATIENT
  Age: 36 Year
  Sex: Female

DRUGS (3)
  1. ADVAIR DISKUS 250/50 [Suspect]
     Indication: ASTHMA
     Dosage: 1PUFF TWICE PER DAY
     Route: 055
  2. ALBUTEROL [Concomitant]
  3. XANAX [Concomitant]

REACTIONS (3)
  - ASTHMA [None]
  - CIRCULATORY COLLAPSE [None]
  - INSOMNIA [None]
